FAERS Safety Report 5297610-9 (Version None)
Quarter: 2007Q2

REPORT INFORMATION
  Report Type: 
  Country: None (occurrence: None)
  Receive Date: 20070416
  Receipt Date: 20070403
  Transmission Date: 20071010
  Serious: Yes (Other)
  Sender: FDA-Public Use
  Company Number: GB-ROCHE-475430

PATIENT
  Age: 68 Year
  Sex: Female
  Weight: 115.2 kg

DRUGS (14)
  1. XENICAL [Suspect]
     Indication: OBESITY
     Route: 048
     Dates: start: 20061208
  2. INSULIN MIXTARD 30 HM [Concomitant]
     Route: 058
  3. RAMIPRIL [Concomitant]
     Indication: HYPERTENSION
     Route: 048
  4. BENDROFLUMETHIAZIDE [Concomitant]
     Route: 048
  5. ATORVASTATIN CALCIUM [Concomitant]
     Route: 048
  6. ARTHRITIS MEDICATION [Concomitant]
  7. CALCIUM SUPPLEMENTS [Concomitant]
  8. 1 CONCOMITANT DRUG [Concomitant]
  9. LANSOPRAZOLE [Concomitant]
  10. DOUBLEBASE [Concomitant]
  11. SALBUTAMOL [Concomitant]
     Dosage: DOSE 100MCG, 2 PUFFS 4-6 HOURLY AS REQUIRED FOUR TIMES
  12. CO-CODAMOL [Concomitant]
  13. FUROSEMIDE [Concomitant]
  14. DOXAZOSIN MESYLATE [Concomitant]

REACTIONS (4)
  - BLOOD GLUCOSE DECREASED [None]
  - DIZZINESS [None]
  - NAUSEA [None]
  - RENAL FAILURE [None]
